FAERS Safety Report 19734565 (Version 2)
Quarter: 2021Q3

REPORT INFORMATION
  Report Type: Report from Study
  Country: FR (occurrence: FR)
  Receive Date: 20210824
  Receipt Date: 20210902
  Transmission Date: 20211014
  Serious: Yes (Death, Hospitalization)
  Sender: FDA-Public Use
  Company Number: FR-ADC THERAPEUTICS SA-ADC-2021-000118

PATIENT
  Age: 90 Year
  Sex: Male
  Weight: 66 kg

DRUGS (2)
  1. IMBRUVICA [Suspect]
     Active Substance: IBRUTINIB
     Indication: DIFFUSE LARGE B-CELL LYMPHOMA
     Dosage: 560 MG, QD
     Route: 048
  2. LONCASTUXIMAB TESIRINE. [Suspect]
     Active Substance: LONCASTUXIMAB TESIRINE
     Indication: DIFFUSE LARGE B-CELL LYMPHOMA
     Dosage: UNK MICROGRAM/KILOGRAM
     Route: 042

REACTIONS (1)
  - Slipping rib syndrome [Fatal]

NARRATIVE: CASE EVENT DATE: 20210813
